FAERS Safety Report 5252539-7 (Version None)
Quarter: 2007Q1

REPORT INFORMATION
  Report Type: 
  Country: None (occurrence: None)
  Receive Date: 20070301
  Receipt Date: 20070216
  Transmission Date: 20070707
  Serious: Yes (Other)
  Sender: FDA-Public Use
  Company Number: PHEH2007US02175

PATIENT
  Sex: Male

DRUGS (3)
  1. ZOMETA [Suspect]
  2. PREDNISONE [Concomitant]
  3. TAXOTERE [Concomitant]

REACTIONS (1)
  - OSTEONECROSIS [None]
